FAERS Safety Report 8550472-6 (Version None)
Quarter: 2012Q3

REPORT INFORMATION
  Report Type: 
  Country: None (occurrence: None)
  Receive Date: 20120730
  Receipt Date: 20120716
  Transmission Date: 20120928
  Serious: Yes (Hospitalization)
  Sender: FDA-Public Use
  Company Number: US-ELI_LILLY_AND_COMPANY-US201205007489

PATIENT
  Sex: Female

DRUGS (1)
  1. ZYPREXA RELPREVV [Suspect]
     Dosage: 405 MG, UNKNOWN
     Dates: start: 20110721

REACTIONS (1)
  - PSYCHOTIC DISORDER [None]
